FAERS Safety Report 23132426 (Version 1)
Quarter: 2023Q4

REPORT INFORMATION
  Report Type: Spontaneous
  Country: US (occurrence: US)
  Receive Date: 20231101
  Receipt Date: 20231101
  Transmission Date: 20240109
  Serious: No
  Sender: FDA-Public Use
  Company Number: US-BRISTOL-MYERS SQUIBB COMPANY-2023-152921

PATIENT
  Age: 48 Year
  Sex: Male

DRUGS (1)
  1. LENALIDOMIDE [Suspect]
     Active Substance: LENALIDOMIDE
     Indication: Hypoglycaemia
     Dosage: FREQUENCY: TAKE 1 CAPSULE BY MOUTH DAILY FOR 14 DAYS ON FOLLOWED BY 7 DAYS OFF EVERY 21 DAYS
     Route: 048

REACTIONS (1)
  - Off label use [Unknown]
